FAERS Safety Report 4576228-7 (Version None)
Quarter: 2005Q1

REPORT INFORMATION
  Report Type: 
  Country: None (occurrence: None)
  Receive Date: 20050119
  Receipt Date: 20041104
  Transmission Date: 20050727
  Serious: Yes (Other)
  Sender: FDA-Public Use
  Company Number: A03200403704

PATIENT
  Age: 77 Year
  Sex: Female
  Weight: 83.0083 kg

DRUGS (9)
  1. PLAVIX [Suspect]
     Dosage: 75 MG QD - ORAL
     Route: 048
  2. GLYBURIDE [Concomitant]
  3. IRBESARTAN [Concomitant]
  4. ATORVASTATIN [Concomitant]
  5. METFORMIN HCL [Concomitant]
  6. MAGNESIUM GLUCONATE [Concomitant]
  7. DILTIAZEM [Concomitant]
  8. EZETIMIBE [Concomitant]
  9. METOPROLOL SUCCINATE [Concomitant]

REACTIONS (1)
  - OPERATIVE HAEMORRHAGE [None]
